FAERS Safety Report 6828813-7 (Version None)
Quarter: 2010Q3

REPORT INFORMATION
  Report Type: 
  Country: None (occurrence: None)
  Receive Date: 20100709
  Receipt Date: 20070217
  Transmission Date: 20110219
  Serious: No
  Sender: FDA-Public Use
  Company Number: US-PFIZER INC-2007014190

PATIENT
  Sex: Male
  Weight: 79.83 kg

DRUGS (5)
  1. CHANTIX [Suspect]
     Indication: SMOKING CESSATION THERAPY
     Dates: start: 20070216
  2. LABETALOL HCL [Concomitant]
  3. PROCARDIA [Concomitant]
  4. LISINOPRIL [Concomitant]
  5. CLONIDINE [Concomitant]

REACTIONS (2)
  - DYSGEUSIA [None]
  - HYPOAESTHESIA [None]
